FAERS Safety Report 26216558 (Version 1)
Quarter: 2025Q4

REPORT INFORMATION
  Report Type: Spontaneous
  Country: US (occurrence: US)
  Receive Date: 20251231
  Receipt Date: 20251231
  Transmission Date: 20260118
  Serious: No
  Sender: JOHNSON AND JOHNSON
  Company Number: US-JNJFOC-20251234537

PATIENT
  Age: 43 Year
  Sex: Female

DRUGS (2)
  1. TREMFYA [Suspect]
     Active Substance: GUSELKUMAB
     Indication: Crohn^s disease
  2. TREMFYA [Suspect]
     Active Substance: GUSELKUMAB

REACTIONS (6)
  - Arthralgia [Unknown]
  - Hypertension [Unknown]
  - Chest discomfort [Unknown]
  - Chest discomfort [Recovered/Resolved]
  - Flushing [Unknown]
  - Abdominal pain lower [Unknown]

NARRATIVE: CASE EVENT DATE: 20251101
